FAERS Safety Report 9146616 (Version 2)
Quarter: 2013Q2

REPORT INFORMATION
  Report Type: Spontaneous
  Country: US (occurrence: US)
  Receive Date: 20130307
  Receipt Date: 20130410
  Transmission Date: 20140414
  Serious: Yes (Other)
  Sender: FDA-Public Use
  Company Number: US-009507513-1302USA012214

PATIENT
  Age: 46 Year
  Sex: Female
  Weight: 65.76 kg

DRUGS (12)
  1. VICTRELIS [Suspect]
     Indication: CHRONIC HEPATITIS C
     Dosage: 800 MG, TID
     Route: 048
     Dates: start: 20130111
  2. PEGINTRON [Suspect]
     Indication: CHRONIC HEPATITIS C
     Dosage: 80 MICROGRAM 0.5 ML, QW
     Dates: start: 20121207
  3. PEGINTRON [Suspect]
     Dosage: 80 MICROGRAM 0.35 ML, QW
  4. REBETOL [Suspect]
     Indication: CHRONIC HEPATITIS C
     Dosage: 800 MG TOTAL
     Dates: start: 20121207
  5. REBETOL [Suspect]
     Dosage: 200 MG IN THE MORNING AND 400 MG AT NIGHT
     Route: 048
  6. BUPROPION HYDROCHLORIDE [Concomitant]
     Dosage: 150 MG, QD
     Dates: start: 2012
  7. LEXAPRO [Concomitant]
     Dosage: 5 MG, QOD
     Dates: start: 2008
  8. MILK THISTLE [Concomitant]
     Dosage: 1/DAY
     Dates: start: 2008
  9. BENADRYL [Concomitant]
     Dosage: 1 DAY PRN PERIODIC
     Route: 048
  10. VITAMIN D (UNSPECIFIED) [Concomitant]
     Dosage: UNK, DAILY
     Route: 042
     Dates: start: 2011
  11. ALBUTEROL [Concomitant]
     Dosage: 2 DAILY, PRN PERIODIC
  12. SYMBICORT [Concomitant]
     Dosage: 166/4.5, PRN

REACTIONS (2)
  - Anaemia [Recovering/Resolving]
  - Neutropenia [Not Recovered/Not Resolved]
